FAERS Safety Report 8294826-4 (Version None)
Quarter: 2012Q2

REPORT INFORMATION
  Report Type: 
  Country: None (occurrence: None)
  Receive Date: 20120418
  Receipt Date: 20120405
  Transmission Date: 20120825
  Serious: No
  Sender: FDA-Public Use
  Company Number: US-JNJFOC-20120403441

PATIENT
  Sex: Female
  Weight: 61.24 kg

DRUGS (1)
  1. FENTANYL-100 [Suspect]
     Indication: BACK DISORDER
     Route: 062
     Dates: start: 20110901

REACTIONS (3)
  - WRONG TECHNIQUE IN DRUG USAGE PROCESS [None]
  - PRODUCT QUALITY ISSUE [None]
  - VOMITING [None]
